FAERS Safety Report 8506866-8 (Version None)
Quarter: 2012Q3

REPORT INFORMATION
  Report Type: 
  Country: None (occurrence: None)
  Receive Date: 20120712
  Receipt Date: 20120709
  Transmission Date: 20120928
  Serious: No
  Sender: FDA-Public Use
  Company Number: US-PFIZER INC-2012145108

PATIENT
  Sex: Female
  Weight: 45 kg

DRUGS (3)
  1. LYRICA [Suspect]
     Indication: FACIAL NEURALGIA
     Dosage: 75 MG IN THE MORNING AND 50 MG IN THE EVENING
     Route: 048
     Dates: start: 20120301
  2. ZALEPLON [Concomitant]
     Indication: SLEEP DISORDER
     Dosage: 5 MG, AS NEEDED, AT BEDTIME
  3. LYRICA [Suspect]
     Indication: NEUROPATHY PERIPHERAL
     Dosage: 75 MG, 2X/DAY
     Route: 048
     Dates: start: 20120601

REACTIONS (5)
  - INSOMNIA [None]
  - CIRCUMSTANCE OR INFORMATION CAPABLE OF LEADING TO MEDICATION ERROR [None]
  - FATIGUE [None]
  - POOR QUALITY SLEEP [None]
  - SOMNOLENCE [None]
